FAERS Safety Report 12705973 (Version 1)
Quarter: 2016Q3

REPORT INFORMATION
  Report Type: Spontaneous
  Country: US (occurrence: None)
  Receive Date: 20160831
  Receipt Date: 20160831
  Transmission Date: 20161109
  Serious: Yes (Hospitalization)
  Sender: FDA-Public Use
  Company Number: None

PATIENT
  Age: 84 Year
  Sex: Male
  Weight: 64.41 kg

DRUGS (1)
  1. RUXOLITINIB, 5 MG INCYTE [Suspect]
     Active Substance: RUXOLITINIB
     Indication: CHRONIC LEUKAEMIA
     Route: 048
     Dates: start: 20160506, end: 20160518

REACTIONS (2)
  - Leukocytosis [None]
  - Condition aggravated [None]

NARRATIVE: CASE EVENT DATE: 20160519
